FAERS Safety Report 12401960 (Version 2)
Quarter: 2016Q2

REPORT INFORMATION
  Report Type: Spontaneous
  Country: US (occurrence: US)
  Receive Date: 20160525
  Receipt Date: 20160601
  Transmission Date: 20160815
  Serious: No
  Sender: FDA-Public Use
  Company Number: US-PFIZER INC-2016274336

PATIENT
  Sex: Male

DRUGS (1)
  1. VIAGRA [Suspect]
     Active Substance: SILDENAFIL CITRATE
     Indication: FLATULENCE
     Dosage: 1 DF, UNK

REACTIONS (3)
  - Erection increased [Unknown]
  - Intentional product misuse [Unknown]
  - Drug ineffective [Unknown]
